FAERS Safety Report 14969112 (Version 3)
Quarter: 2018Q2

REPORT INFORMATION
  Report Type: Spontaneous
  Country: GB (occurrence: GB)
  Receive Date: 20180604
  Receipt Date: 20180628
  Transmission Date: 20180711
  Serious: Yes (Other)
  Sender: FDA-Public Use
  Company Number: GB-PFIZER INC-20370

PATIENT
  Age: 25 Year
  Sex: Female

DRUGS (6)
  1. TOPOTECAN [Suspect]
     Active Substance: TOPOTECAN HYDROCHLORIDE
     Indication: B PRECURSOR TYPE ACUTE LEUKAEMIA
     Dosage: 1 MG/M2, IV INFUSION ON DAYS 1-5
     Route: 042
  2. DEXAMETHASONE SODIUM PHOSPHATE. [Concomitant]
     Active Substance: DEXAMETHASONE SODIUM PHOSPHATE
     Indication: B PRECURSOR TYPE ACUTE LEUKAEMIA
     Dosage: 45 MG/M2, 3X/DAY (ON DAYS 7-14)
     Route: 048
  3. G-CSF [Concomitant]
     Active Substance: GRANULOCYTE COLONY-STIMULATING FACTOR NOS
     Indication: B PRECURSOR TYPE ACUTE LEUKAEMIA
     Dosage: 300 UG, START ON DAY 7 AND CONTINUE UNTIL ANC}500 PER UL
  4. GEMCITABINE [Suspect]
     Active Substance: GEMCITABINE\GEMCITABINE HYDROCHLORIDE
     Indication: B PRECURSOR TYPE ACUTE LEUKAEMIA
     Dosage: 3600 MG/M2, IV  INFUSION PER DOSE ON DAY 7
     Route: 042
  5. THIOTEPA. [Suspect]
     Active Substance: THIOTEPA
     Indication: B PRECURSOR TYPE ACUTE LEUKAEMIA
     Dosage: 15 MG/M2, ON DAY 2
     Route: 042
  6. VINORELBINE TARTRATE. [Suspect]
     Active Substance: VINORELBINE TARTRATE
     Indication: B PRECURSOR TYPE ACUTE LEUKAEMIA
     Dosage: 20 MG/M2, IV PUSH ON DAY 0 AND 7
     Route: 042

REACTIONS (2)
  - Thrombocytopenia [Unknown]
  - Neutropenia [Unknown]
